FAERS Safety Report 8057369-9 (Version None)
Quarter: 2012Q1

REPORT INFORMATION
  Report Type: 
  Country: None (occurrence: None)
  Receive Date: 20120119
  Receipt Date: 20120113
  Transmission Date: 20120608
  Serious: Yes (Life-Threatening, Hospitalization)
  Sender: FDA-Public Use
  Company Number: FR-PFIZER INC-K201000115

PATIENT
  Age: 62 Year
  Sex: Female

DRUGS (11)
  1. OXYCONTIN [Concomitant]
     Dosage: 20 MG, UNK
     Dates: start: 20090701
  2. NEBIVOLOL [Suspect]
     Dosage: 5 MG, 1X/DAY
     Route: 048
     Dates: start: 20071201, end: 20091028
  3. ATHYMIL [Suspect]
     Dosage: 60 MG, 1X/DAY
     Route: 048
     Dates: start: 20060101, end: 20091029
  4. CALTRATE +D [Concomitant]
     Dosage: 2 DF, 1X/DAY
     Dates: start: 20070101
  5. TETRAZEPAM [Suspect]
     Dosage: 50 MG, 1X/DAY
     Route: 048
     Dates: start: 20090601, end: 20091027
  6. RAMIPRIL [Suspect]
     Dosage: 1.25 MG, 1X/DAY
     Dates: start: 20091201
  7. LYRICA [Suspect]
     Dosage: 300 MG, 2X/DAY
     Route: 048
     Dates: start: 20081001, end: 20091023
  8. STRUCTUM [Concomitant]
     Dosage: 1000 MG, UNK
     Dates: start: 20090801, end: 20091023
  9. OXYCONTIN [Concomitant]
     Dosage: 40 MG, UNK
     Dates: start: 20090701
  10. RAMIPRIL [Suspect]
     Dosage: 10 MG, 1X/DAY
     Route: 048
     Dates: start: 20060101, end: 20091027
  11. ESIDRIX [Suspect]
     Dosage: 25 MG, 1X/DAY
     Route: 048
     Dates: start: 20081201, end: 20091029

REACTIONS (10)
  - HAEMATOMA [None]
  - ASTHENIA [None]
  - CARDIOMEGALY [None]
  - PULMONARY ALVEOLAR MICROLITHIASIS [None]
  - PANCYTOPENIA [None]
  - FEBRILE BONE MARROW APLASIA [None]
  - PYREXIA [None]
  - ABDOMINAL WALL CYST [None]
  - EPISTAXIS [None]
  - PORTAL HYPERTENSION [None]
